FAERS Safety Report 6085319-3 (Version None)
Quarter: 2009Q1

REPORT INFORMATION
  Report Type: 
  Country: None (occurrence: None)
  Receive Date: 20090213
  Receipt Date: 20080318
  Transmission Date: 20090719
  Serious: Yes (Other)
  Sender: FDA-Public Use
  Company Number: US-WYE-H03197708

PATIENT
  Age: 4 Year
  Sex: Male

DRUGS (3)
  1. JUNIOR STRENGTH ADVIL [Suspect]
     Indication: HEADACHE
     Dosage: 2 TABLET AS NEEDED, ORAL
     Route: 048
     Dates: start: 20050101, end: 20050101
  2. NOVOLIN N (INSULIN HUMAN INJECTI0N, ISOPHANE) [Concomitant]
  3. NOVOLOG [Concomitant]

REACTIONS (2)
  - CONDITION AGGRAVATED [None]
  - DIABETES MELLITUS [None]
